FAERS Safety Report 9868922 (Version 1)
Quarter: 2014Q1

REPORT INFORMATION
  Report Type: Spontaneous
  Country: BR (occurrence: BR)
  Receive Date: 20140204
  Receipt Date: 20140204
  Transmission Date: 20141002
  Serious: Yes (Hospitalization, Other)
  Sender: FDA-Public Use
  Company Number: BR-ELI_LILLY_AND_COMPANY-BR201401009327

PATIENT
  Age: 59 Year
  Sex: Female
  Weight: 70 kg

DRUGS (2)
  1. HUMAN INSULIN (RDNA ORIGIN) NPH [Suspect]
     Indication: PRODUCT USED FOR UNKNOWN INDICATION
     Dosage: 36 IU, TID
     Route: 065
     Dates: start: 1999
  2. HUMULIN R [Suspect]
     Indication: DIABETES MELLITUS
     Dosage: 20 IU, TID
     Route: 058
     Dates: start: 201206

REACTIONS (8)
  - Blood glucose increased [Unknown]
  - Intervertebral disc protrusion [Unknown]
  - Mobility decreased [Unknown]
  - Blindness [Unknown]
  - Drug ineffective [Unknown]
  - Diabetes mellitus inadequate control [Unknown]
  - Injection site discomfort [Unknown]
  - Injection site pain [Unknown]
